FAERS Safety Report 15183042 (Version 1)
Quarter: 2018Q3

REPORT INFORMATION
  Report Type: Spontaneous
  Country: GB (occurrence: GB)
  Receive Date: 20180723
  Receipt Date: 20180723
  Transmission Date: 20181010
  Serious: Yes (Life-Threatening, Hospitalization, Other)
  Sender: FDA-Public Use
  Company Number: GB-CELLTRION INC.-2016GB009076

PATIENT

DRUGS (11)
  1. PREDNISOLONE                       /00016204/ [Suspect]
     Active Substance: PREDNISOLONE
     Dosage: 40? 60 MG, UNK
     Route: 065
  2. AZATHIOPRINE. [Suspect]
     Active Substance: AZATHIOPRINE
     Indication: UVEITIS
     Route: 065
  3. PREDNISOLONE                       /00016204/ [Suspect]
     Active Substance: PREDNISOLONE
     Indication: UVEITIS
     Dosage: 1.5 MG/KG,UNK
     Route: 065
  4. INFLIXIMAB (UNKNOWN) [Suspect]
     Active Substance: INFLIXIMAB
     Indication: UVEITIS
     Dosage: 5 MG/KG, WEEKS 0, 2, AND 6, AND 8?WEEKLY
     Route: 042
  5. SULFAMETHOXAZOLE [Concomitant]
     Active Substance: SULFAMETHOXAZOLE
     Indication: LYMPHOPENIA
     Dosage: 480 MG, 1/WEEK
  6. MYCOPHENOLATE MOFETIL. [Suspect]
     Active Substance: MYCOPHENOLATE MOFETIL
     Indication: IMMUNOSUPPRESSION
     Dosage: 2.5 G, UNK
     Route: 065
  7. TRIAMCINOLONE                      /00031902/ [Suspect]
     Active Substance: TRIAMCINOLONE ACETONIDE
     Indication: PRODUCT USED FOR UNKNOWN INDICATION
     Route: 031
  8. PREDNISOLONE                       /00016204/ [Suspect]
     Active Substance: PREDNISOLONE
     Dosage: 40 MG, UNK
     Route: 065
  9. PREDNISOLONE                       /00016204/ [Suspect]
     Active Substance: PREDNISOLONE
     Dosage: 20 MG, UNK
     Route: 065
  10. METHYLPREDNISOLONE                 /00049605/ [Concomitant]
     Indication: UVEITIS
     Dosage: 3 ? 1 G, UNK
     Route: 042
  11. TRIMETHOPRIM. [Concomitant]
     Active Substance: TRIMETHOPRIM
     Indication: LYMPHOPENIA
     Dosage: 480 MG, 1/WEEK

REACTIONS (8)
  - Glaucoma [Unknown]
  - Off label use [Unknown]
  - Intestinal obstruction [Recovered/Resolved]
  - Sepsis [Recovered/Resolved]
  - Multiple organ dysfunction syndrome [Recovered/Resolved]
  - Pneumonia [Recovered/Resolved]
  - Drug ineffective [Unknown]
  - Maculopathy [Unknown]
